FAERS Safety Report 7304767-4 (Version None)
Quarter: 2011Q1

REPORT INFORMATION
  Report Type: 
  Country: None (occurrence: None)
  Receive Date: 20110222
  Receipt Date: 20110215
  Transmission Date: 20110831
  Serious: Yes (Other)
  Sender: FDA-Public Use
  Company Number: US-PFIZER INC-US-WYE-H18489610

PATIENT
  Sex: Female

DRUGS (4)
  1. EFFEXOR XR [Suspect]
     Indication: BIPOLAR DISORDER
     Dosage: 37.5 MG, 1X/DAY
     Route: 048
     Dates: start: 20091209
  2. EFFEXOR XR [Suspect]
     Indication: DEPRESSION
  3. EFFEXOR XR [Suspect]
     Indication: OFF LABEL USE
  4. LAMICTAL [Concomitant]
     Indication: BIPOLAR DISORDER
     Dosage: 100MG IN THE MORNING AND 200MG AT BEDTIME
     Dates: start: 20070801

REACTIONS (4)
  - BIPOLAR DISORDER [None]
  - AGITATION [None]
  - MALAISE [None]
  - FEELING ABNORMAL [None]
